FAERS Safety Report 7490490-2 (Version None)
Quarter: 2011Q2

REPORT INFORMATION
  Report Type: 
  Country: None (occurrence: None)
  Receive Date: 20110517
  Receipt Date: 20110517
  Transmission Date: 20111010
  Serious: Yes (Hospitalization)
  Sender: FDA-Public Use
  Company Number: None

PATIENT
  Age: 60 Year
  Sex: Female
  Weight: 77.1115 kg

DRUGS (2)
  1. BONIVA [Suspect]
     Indication: OSTEOPOROSIS PROPHYLAXIS
     Dosage: 1 PILL PER MONTH- PO
     Route: 048
     Dates: start: 20110103, end: 20110306
  2. BONIVA [Suspect]
     Indication: BONE LOSS
     Dosage: 1 PILL PER MONTH- PO
     Route: 048
     Dates: start: 20110103, end: 20110306

REACTIONS (3)
  - OESOPHAGEAL ULCER [None]
  - PNEUMONIA [None]
  - BURN OESOPHAGEAL [None]
